FAERS Safety Report 18077855 (Version 1)
Quarter: 2020Q3

REPORT INFORMATION
  Report Type: Spontaneous
  Country: PL (occurrence: PL)
  Receive Date: 20200728
  Receipt Date: 20200728
  Transmission Date: 20201103
  Serious: Yes (Death)
  Sender: FDA-Public Use
  Company Number: PL-TEVA-2020-PL-1805553

PATIENT
  Age: 71 Year
  Sex: Female
  Weight: 83 kg

DRUGS (4)
  1. FLUOROURACIL MEDAC [Suspect]
     Active Substance: FLUOROURACIL
     Indication: PANCREATIC CARCINOMA
     Dosage: 4600MG
     Route: 042
     Dates: start: 20200410, end: 20200410
  2. LEUCOVORIN. [Suspect]
     Active Substance: LEUCOVORIN
     Indication: PANCREATIC CARCINOMA
     Dosage: 760MG
     Route: 042
     Dates: start: 20200410, end: 20200410
  3. OXALIPLATINE FRESENIUS KABI [Suspect]
     Active Substance: OXALIPLATIN
     Indication: PANCREATIC CARCINOMA
     Dosage: 165MG
     Route: 042
     Dates: start: 20200410, end: 20200410
  4. IRINOTECAN ACCORD [Suspect]
     Active Substance: IRINOTECAN
     Indication: PANCREATIC CARCINOMA
     Dosage: 200MG
     Route: 042
     Dates: start: 20200410, end: 20200410

REACTIONS (3)
  - Diarrhoea [Fatal]
  - Neutropenia [Fatal]
  - Stomatitis [Fatal]

NARRATIVE: CASE EVENT DATE: 20200423
